FAERS Safety Report 6689116-7 (Version None)
Quarter: 2010Q2

REPORT INFORMATION
  Report Type: 
  Country: None (occurrence: None)
  Receive Date: 20100420
  Receipt Date: 20100408
  Transmission Date: 20101027
  Serious: Yes (Other)
  Sender: FDA-Public Use
  Company Number: GR-PFIZER INC-2010043329

PATIENT
  Age: 64 Year
  Sex: Female

DRUGS (2)
  1. PREDNISOLONE [Suspect]
     Dosage: 25 MG, 3X/DAY
     Route: 042
  2. FOLIC ACID [Concomitant]

REACTIONS (3)
  - ARRHYTHMIA [None]
  - ATRIAL TACHYCARDIA [None]
  - PERICARDIAL EFFUSION [None]
